FAERS Safety Report 6214416-4 (Version None)
Quarter: 2009Q2

REPORT INFORMATION
  Report Type: 
  Country: None (occurrence: None)
  Receive Date: 20090604
  Receipt Date: 20090528
  Transmission Date: 20091009
  Serious: Yes (Other)
  Sender: FDA-Public Use
  Company Number: US-ASTRAZENECA-2009UW03527

PATIENT
  Age: 43 Year
  Sex: Male
  Weight: 111.1 kg

DRUGS (5)
  1. SEROQUEL [Suspect]
     Indication: SCHIZOPHRENIA
     Route: 048
     Dates: start: 20010101, end: 20040901
  2. ABILIFY [Concomitant]
     Dates: start: 20030101, end: 20070101
  3. GEODON [Concomitant]
     Dates: start: 20080101
  4. RISPERDAL [Concomitant]
     Dosage: 2 MG TO 4 MG
     Dates: start: 20030101, end: 20070101
  5. TRAZODONE HCL [Concomitant]
     Dates: start: 20030101

REACTIONS (6)
  - BACK INJURY [None]
  - GALLBLADDER DISORDER [None]
  - GASTRITIS [None]
  - HEPATITIS C [None]
  - OBESITY [None]
  - TYPE 2 DIABETES MELLITUS [None]
